FAERS Safety Report 16064332 (Version 2)
Quarter: 2019Q1

REPORT INFORMATION
  Report Type: Spontaneous
  Country: JP (occurrence: JP)
  Receive Date: 20190312
  Receipt Date: 20190326
  Transmission Date: 20190418
  Serious: No
  Sender: FDA-Public Use
  Company Number: JP-PURDUE PHARMA-GBR-2019-0064993

PATIENT
  Age: 77 Year
  Sex: Female

DRUGS (1)
  1. NORSPAN [Suspect]
     Active Substance: BUPRENORPHINE
     Indication: CANCER PAIN
     Dosage: 5 MCG, Q1H
     Route: 062

REACTIONS (1)
  - Off label use [Unknown]
